FAERS Safety Report 7210132-0 (Version None)
Quarter: 2011Q1

REPORT INFORMATION
  Report Type: 
  Country: None (occurrence: None)
  Receive Date: 20110105
  Receipt Date: 20110104
  Transmission Date: 20110831
  Serious: Yes (Other)
  Sender: FDA-Public Use
  Company Number: US-BRISTOL-MYERS SQUIBB COMPANY-15221740

PATIENT
  Age: 44 Year
  Sex: Female

DRUGS (3)
  1. CYTOXAN [Suspect]
     Route: 042
  2. IXEMPRA KIT [Suspect]
     Indication: BREAST CANCER
     Route: 042
     Dates: start: 20090830
  3. HERCEPTIN [Suspect]
     Dosage: ANHERCEPTIN

REACTIONS (1)
  - NEUROPATHY PERIPHERAL [None]
